FAERS Safety Report 7895141-0 (Version None)
Quarter: 2011Q4

REPORT INFORMATION
  Report Type: 
  Country: None (occurrence: None)
  Receive Date: 20111106
  Receipt Date: 20110823
  Transmission Date: 20120403
  Serious: No
  Sender: FDA-Public Use
  Company Number: US-AMGEN-USASP2011043216

PATIENT
  Sex: Male

DRUGS (13)
  1. ZANAFLEX [Concomitant]
     Dosage: UNK
  2. LANSOPRAZOLE [Concomitant]
     Dosage: UNK
  3. ASACOL [Concomitant]
     Dosage: UNK
  4. CLOBETASOL [Concomitant]
     Dosage: UNK
  5. PAROXETINE HCL [Concomitant]
     Dosage: UNK
  6. SEROQUEL [Concomitant]
     Dosage: UNK
  7. TAMSULOSIN HCL [Concomitant]
     Dosage: UNK
  8. AMBIEN [Concomitant]
     Dosage: UNK
  9. GABAPENTIN [Concomitant]
     Dosage: UNK
  10. TAZORAC [Concomitant]
     Dosage: UNK
  11. TRAZODONE HYDROCHLORIDE [Concomitant]
     Dosage: UNK
  12. ENBREL [Suspect]
     Indication: PSORIASIS
     Dates: start: 20110601
  13. IBUPROFEN [Concomitant]
     Dosage: UNK

REACTIONS (3)
  - INJECTION SITE HAEMORRHAGE [None]
  - INJECTION SITE PAIN [None]
  - INJECTION SITE HAEMATOMA [None]
